FAERS Safety Report 7435523-4 (Version None)
Quarter: 2011Q2

REPORT INFORMATION
  Report Type: 
  Country: None (occurrence: None)
  Receive Date: 20110425
  Receipt Date: 20110413
  Transmission Date: 20111010
  Serious: Yes (Hospitalization)
  Sender: FDA-Public Use
  Company Number: US-BRISTOL-MYERS SQUIBB COMPANY-15671126

PATIENT
  Age: 55 Year
  Sex: Male

DRUGS (3)
  1. METFORMIN [Concomitant]
  2. ONGLYZA [Suspect]
  3. GLYBURIDE [Concomitant]

REACTIONS (1)
  - PANCREATITIS [None]
